FAERS Safety Report 24532767 (Version 4)
Quarter: 2024Q4

REPORT INFORMATION
  Report Type: Spontaneous
  Country: PT (occurrence: PT)
  Receive Date: 20241022
  Receipt Date: 20241120
  Transmission Date: 20250115
  Serious: Yes (Hospitalization, Other)
  Sender: MYLAN
  Company Number: PT-MYLANLABS-2024M1090320

PATIENT
  Age: 80 Year
  Sex: Male

DRUGS (12)
  1. CASPOFUNGIN [Suspect]
     Active Substance: CASPOFUNGIN
     Indication: Endocarditis candida
     Dosage: UNK
     Route: 065
  2. CASPOFUNGIN [Suspect]
     Active Substance: CASPOFUNGIN
     Indication: Fungal endocarditis
  3. CASPOFUNGIN [Suspect]
     Active Substance: CASPOFUNGIN
     Indication: Candida infection
  4. VORICONAZOLE [Suspect]
     Active Substance: VORICONAZOLE
     Indication: Endocarditis candida
     Dosage: 400 MILLIGRAM, BID (DAILY DOSE OF VORICONAZOLE OF 800 MG (400 MG, 12/12H))
     Route: 048
  5. VORICONAZOLE [Suspect]
     Active Substance: VORICONAZOLE
     Dosage: 400 MILLIGRAM, BID (DAILY DOSE OF VORICONAZOLE OF 800 MG (400 MG, 12/12H))
     Route: 048
  6. VANCOMYCIN [Suspect]
     Active Substance: VANCOMYCIN
     Indication: Product used for unknown indication
     Dosage: UNK
     Route: 065
  7. CEFTRIAXONE [Suspect]
     Active Substance: CEFTRIAXONE
     Indication: Product used for unknown indication
     Dosage: UNK
     Route: 065
  8. GENTAMICIN [Suspect]
     Active Substance: GENTAMICIN
     Indication: Product used for unknown indication
     Dosage: UNK
     Route: 065
  9. ITRACONAZOLE [Concomitant]
     Active Substance: ITRACONAZOLE
     Indication: Product used for unknown indication
     Dosage: UNK
     Route: 065
  10. FLUCONAZOLE [Concomitant]
     Active Substance: FLUCONAZOLE
     Indication: Product used for unknown indication
     Dosage: UNK
     Route: 065
  11. FLUCYTOSINE [Concomitant]
     Active Substance: FLUCYTOSINE
     Indication: Product used for unknown indication
     Dosage: UNK
     Route: 065
  12. AMPHOTERICIN B [Concomitant]
     Active Substance: AMPHOTERICIN B
     Indication: Fungal endocarditis
     Dosage: UNK
     Route: 065

REACTIONS (3)
  - Acute kidney injury [Unknown]
  - Drug ineffective [Unknown]
  - Disease progression [Unknown]
